FAERS Safety Report 25263492 (Version 2)
Quarter: 2025Q2

REPORT INFORMATION
  Report Type: Spontaneous
  Country: FR (occurrence: FR)
  Receive Date: 20250502
  Receipt Date: 20250630
  Transmission Date: 20250716
  Serious: Yes (Hospitalization, Other)
  Sender: AUROBINDO
  Company Number: FR-AFSSAPS-RE2025000351

PATIENT
  Age: 32 Year
  Sex: Female
  Weight: 75 kg

DRUGS (5)
  1. CYAMEMAZINE [Suspect]
     Active Substance: CYAMEMAZINE
     Indication: Mental disorder
     Dosage: 20 MILLIGRAM, ONCE A DAY
     Route: 048
     Dates: start: 202311, end: 202312
  2. CYAMEMAZINE [Suspect]
     Active Substance: CYAMEMAZINE
     Dosage: 20 MILLIGRAM, ONCE A DAY
     Route: 048
     Dates: start: 202412, end: 20250408
  3. VENLAFAXINE [Suspect]
     Active Substance: VENLAFAXINE HYDROCHLORIDE
     Indication: Depression
     Dosage: 75 MILLIGRAM, ONCE A DAY
     Route: 048
     Dates: start: 202407
  4. OXAZEPAM [Suspect]
     Active Substance: OXAZEPAM
     Indication: Mental disorder
     Route: 048
     Dates: start: 202407
  5. DIANE (CYPROTERONE ACETATE\ETHINYL ESTRADIOL) [Suspect]
     Active Substance: CYPROTERONE ACETATE\ETHINYL ESTRADIOL
     Indication: Product used for unknown indication
     Route: 048
     Dates: start: 2011, end: 20250131

REACTIONS (1)
  - Pulmonary embolism [Recovered/Resolved]

NARRATIVE: CASE EVENT DATE: 20250131
